FAERS Safety Report 23153109 (Version 1)
Quarter: 2023Q4

REPORT INFORMATION
  Report Type: Spontaneous
  Country: US (occurrence: US)
  Receive Date: 20231107
  Receipt Date: 20231107
  Transmission Date: 20240109
  Serious: No
  Sender: FDA-Public Use
  Company Number: US-HIKMA PHARMACEUTICALS USA INC.-US-H14001-23-64524

PATIENT

DRUGS (3)
  1. PENICILLIN V POTASSIUM [Suspect]
     Active Substance: PENICILLIN V POTASSIUM
     Indication: Surgery
     Dosage: ONE TABLET (ON THE FIRST DAY)
     Route: 048
     Dates: start: 20230806
  2. PENICILLIN V POTASSIUM [Suspect]
     Active Substance: PENICILLIN V POTASSIUM
     Dosage: THREE TABLETS (ON THE SECOND, THIRD, FOURTH AND FIFTH DAY)
     Route: 048
     Dates: start: 20230806
  3. PENICILLIN V POTASSIUM [Suspect]
     Active Substance: PENICILLIN V POTASSIUM
     Dosage: TWO TABLETS (ON THE LAST DAY)
     Route: 048
     Dates: start: 20230806

REACTIONS (11)
  - Bruxism [Unknown]
  - Oral pain [Unknown]
  - Headache [Unknown]
  - Myalgia [Unknown]
  - Arthralgia [Unknown]
  - Dry mouth [Unknown]
  - Pain in extremity [None]
  - Musculoskeletal pain [Unknown]
  - Nasal congestion [Unknown]
  - Drug hypersensitivity [Unknown]
  - Off label use [Recovered/Resolved]
